FAERS Safety Report 12985372 (Version 1)
Quarter: 2016Q4

REPORT INFORMATION
  Report Type: Spontaneous
  Country: IE (occurrence: IE)
  Receive Date: 20161130
  Receipt Date: 20161130
  Transmission Date: 20170207
  Serious: Yes (Other)
  Sender: FDA-Public Use
  Company Number: IE-BAXTER-2016BAX059095

PATIENT
  Age: 58 Year
  Sex: Female
  Weight: 74 kg

DRUGS (20)
  1. GLUCOSE 5% INTRAVENOUS INFUSION BP [Suspect]
     Active Substance: DEXTROSE
     Indication: MEDICATION DILUTION
     Route: 042
  2. RANITIDINE. [Suspect]
     Active Substance: RANITIDINE
     Dosage: 6 HOURS BEFORE THE ADMINISTRATION OF THE PACLITAXEL DOSE ON 10NOV2016
     Route: 042
     Dates: start: 201611
  3. DEXAMETHAZONE [Suspect]
     Active Substance: DEXAMETHASONE
     Indication: PREMEDICATION
     Dosage: 12 HOURS BEFORE THE ADMINISTRATION OF THE PACLITAXEL DOSE ON 04NOV2016
     Route: 065
     Dates: start: 201611
  4. CHLORPHENAMINE [Suspect]
     Active Substance: CHLORPHENIRAMINE MALEATE
     Indication: PREMEDICATION
     Dosage: 30 MINS BEFORE THE ADMINISTRATION OF THE PACLITAXEL DOSE ON 04NOV2016
     Route: 042
     Dates: start: 201611
  5. DEXAMETHAZONE [Suspect]
     Active Substance: DEXAMETHASONE
     Dosage: 6 HOURS BEFORE THE ADMINISTRATION OF THE PACLITAXEL DOSE ON 10NOV2016
     Route: 065
     Dates: start: 201611
  6. SODIUM CHLORIDE INTRAVENOUS INFUSION BP 0.9% W/V [Suspect]
     Active Substance: SODIUM CHLORIDE
     Indication: MEDICATION DILUTION
     Route: 042
     Dates: start: 20161104, end: 20161104
  7. CHLORPHENAMINE [Suspect]
     Active Substance: CHLORPHENIRAMINE MALEATE
     Dosage: 30 MINS BEFORE THE ADMINISTRATION OF THE PACLITAXEL DOSE ON 10NOV2016
     Route: 042
     Dates: start: 201611
  8. RANITIDINE. [Suspect]
     Active Substance: RANITIDINE
     Dosage: 12 HOURS BEFORE THE ADMINISTRATION OF THE PACLITAXEL DOSE ON 10NOV2016
     Route: 042
     Dates: start: 201611
  9. DEXAMETHAZONE [Suspect]
     Active Substance: DEXAMETHASONE
     Dosage: 6 HOURS BEFORE THE ADMINISTRATION OF THE PACLITAXEL DOSE ON 04NOV2016
     Route: 065
     Dates: start: 201611
  10. SODIUM CHLORIDE INTRAVENOUS INFUSION BP 0.9% W/V [Suspect]
     Active Substance: SODIUM CHLORIDE
     Route: 042
     Dates: start: 20161110, end: 20161110
  11. PACLITAXEL. [Suspect]
     Active Substance: PACLITAXEL
     Indication: CERVIX CARCINOMA
     Route: 042
     Dates: start: 20161104, end: 20161104
  12. RANITIDINE. [Suspect]
     Active Substance: RANITIDINE
     Dosage: 6 HOURS BEFORE THE ADMINISTRATION OF THE PACLITAXEL DOSE ON 04NOV2016
     Route: 042
     Dates: start: 201611
  13. PACLITAXEL. [Suspect]
     Active Substance: PACLITAXEL
     Route: 042
     Dates: start: 20161110, end: 20161110
  14. RANITIDINE. [Suspect]
     Active Substance: RANITIDINE
     Indication: PREMEDICATION
     Dosage: 12 HOURS BEFORE THE ADMINISTRATION OF THE PACLITAXEL DOSE ON 04NOV2016
     Route: 042
     Dates: start: 201611
  15. CARBOPLATIN. [Suspect]
     Active Substance: CARBOPLATIN
     Indication: PRODUCT USED FOR UNKNOWN INDICATION
     Route: 042
  16. GRANISETRON [Suspect]
     Active Substance: GRANISETRON
     Indication: PREMEDICATION
     Dosage: 12 HOURS BEFORE THE ADMINISTRATION OF THE PACLITAXEL DOSE ON 04NOV2016
     Route: 048
     Dates: start: 201611
  17. GRANISETRON [Suspect]
     Active Substance: GRANISETRON
     Dosage: 6 HOURS BEFORE THE ADMINISTRATION OF THE PACLITAXEL DOSE ON 04NOV2016
     Route: 048
     Dates: start: 201611
  18. GRANISETRON [Suspect]
     Active Substance: GRANISETRON
     Dosage: 12 HOURS BEFORE THE ADMINISTRATION OF THE PACLITAXEL DOSE ON 10NOV2016
     Route: 048
     Dates: start: 201611
  19. DEXAMETHAZONE [Suspect]
     Active Substance: DEXAMETHASONE
     Dosage: 12 HOURS BEFORE THE ADMINISTRATION OF THE PACLITAXEL DOSE ON 10NOV2016
     Route: 065
     Dates: start: 201611
  20. GRANISETRON [Suspect]
     Active Substance: GRANISETRON
     Dosage: 6 HOURS BEFORE THE ADMINISTRATION OF THE PACLITAXEL DOSE ON 10NOV2016
     Route: 048
     Dates: start: 201611

REACTIONS (5)
  - Dyspnoea [Recovered/Resolved]
  - Back pain [Recovered/Resolved]
  - Flushing [Recovered/Resolved]
  - Hypertension [Recovered/Resolved]
  - Abdominal pain [Recovered/Resolved]

NARRATIVE: CASE EVENT DATE: 20161104
